FAERS Safety Report 24035716 (Version 1)
Quarter: 2024Q3

REPORT INFORMATION
  Report Type: Spontaneous
  Country: US (occurrence: US)
  Receive Date: 20240701
  Receipt Date: 20240701
  Transmission Date: 20241016
  Serious: No
  Sender: TARO
  Company Number: US-TARO PHARMACEUTICALS USA INC.-2023TAR00625

PATIENT

DRUGS (1)
  1. IVERMECTIN [Suspect]
     Active Substance: IVERMECTIN
     Indication: Lice infestation
     Dosage: UNK, ONCE, THE CONTENTS OF THE TUBE, TO SCALP/HAIR
     Route: 061
     Dates: start: 20230528

REACTIONS (4)
  - Application site irritation [Not Recovered/Not Resolved]
  - Application site pruritus [Recovering/Resolving]
  - Hair texture abnormal [Not Recovered/Not Resolved]
  - Hair injury [Not Recovered/Not Resolved]

NARRATIVE: CASE EVENT DATE: 20230528
